FAERS Safety Report 19665532 (Version 1)
Quarter: 2021Q3

REPORT INFORMATION
  Report Type: Spontaneous
  Country: IT (occurrence: IT)
  Receive Date: 20210806
  Receipt Date: 20210806
  Transmission Date: 20211014
  Serious: Yes (Other)
  Sender: FDA-Public Use
  Company Number: NVSC2021IT171263

PATIENT
  Age: 31 Year
  Sex: Male
  Weight: 80 kg

DRUGS (1)
  1. COSENTYX [Suspect]
     Active Substance: SECUKINUMAB
     Indication: ANKYLOSING SPONDYLITIS
     Dosage: 300 MG
     Route: 058
     Dates: start: 20201101, end: 20210721

REACTIONS (4)
  - Back pain [Unknown]
  - Neck pain [Unknown]
  - Iridocyclitis [Unknown]
  - Arthritis [Unknown]

NARRATIVE: CASE EVENT DATE: 20210721
